FAERS Safety Report 4499072-8 (Version None)
Quarter: 2004Q4

REPORT INFORMATION
  Report Type: 
  Country: None (occurrence: None)
  Receive Date: 20041111
  Receipt Date: 20041104
  Transmission Date: 20050328
  Serious: Yes (Hospitalization)
  Sender: FDA-Public Use
  Company Number: FR-BRISTOL-MYERS SQUIBB COMPANY-12756318

PATIENT
  Age: 52 Year
  Sex: Male

DRUGS (2)
  1. ELISOR [Suspect]
     Indication: HYPERCHOLESTEROLAEMIA
     Route: 048
     Dates: start: 20040301, end: 20041021
  2. TRIATEC [Concomitant]

REACTIONS (4)
  - CHEST PAIN [None]
  - EPISTAXIS [None]
  - HYPERTENSION [None]
  - HYPOGLYCAEMIA [None]
